FAERS Safety Report 23518114 (Version 1)
Quarter: 2024Q1

REPORT INFORMATION
  Report Type: 
  Country: None (occurrence: None)
  Receive Date: 20240213
  Receipt Date: 20240213
  Transmission Date: 20240410
  Serious: No
  Sender: FDA-Public Use
  Company Number: ES-ROCHE-2359302

PATIENT
  Weight: 71 kg

DRUGS (10)
  1. ATEZOLIZUMAB [Suspect]
     Active Substance: ATEZOLIZUMAB
     Dates: start: 20190628, end: 20190628
  2. ATEZOLIZUMAB [Suspect]
     Active Substance: ATEZOLIZUMAB
     Dates: start: 20190807, end: 20190807
  3. ATEZOLIZUMAB [Suspect]
     Active Substance: ATEZOLIZUMAB
     Dates: start: 20190829, end: 20190829
  4. ATEZOLIZUMAB [Suspect]
     Active Substance: ATEZOLIZUMAB
     Dates: start: 20190918, end: 20190918
  5. GLYCOPYRRONIUM\INDACATEROL [Concomitant]
     Active Substance: GLYCOPYRRONIUM\INDACATEROL
  6. LEXATIN [Concomitant]
     Dates: start: 20191009
  7. GEMCITABINE [Concomitant]
     Active Substance: GEMCITABINE
     Dosage: 2700
  8. CISPLATIN [Concomitant]
     Active Substance: CISPLATIN
     Dosage: 90
  9. NIVOLUMAB [Concomitant]
     Active Substance: NIVOLUMAB
     Dates: start: 20191014, end: 20200427
  10. TAXOTERE [Concomitant]
     Active Substance: DOCETAXEL
     Dates: start: 20200501, end: 20200923

REACTIONS (3)
  - Hepatotoxicity [None]
  - Decreased appetite [None]
  - Pyrexia [None]

NARRATIVE: CASE EVENT DATE: 20190716
